FAERS Safety Report 14448268 (Version 1)
Quarter: 2018Q1

REPORT INFORMATION
  Report Type: Spontaneous
  Country: US (occurrence: US)
  Receive Date: 20180126
  Receipt Date: 20180126
  Transmission Date: 20180509
  Serious: Yes (Other)
  Sender: FDA-Public Use
  Company Number: None

PATIENT
  Age: 64 Year
  Sex: Female
  Weight: 86.64 kg

DRUGS (2)
  1. AMLODIPINE [Suspect]
     Active Substance: AMLODIPINE BESYLATE
     Indication: HYPERTENSION
     Dosage: FREQUENCY - DAILY-HS
     Route: 048
  2. ATORVASTATIN 20MG [Suspect]
     Active Substance: ATORVASTATIN
     Indication: HYPERLIPIDAEMIA
     Dosage: FREQUENCY - QD-HS
     Route: 048
     Dates: end: 20171024

REACTIONS (4)
  - Low density lipoprotein decreased [None]
  - Affective disorder [None]
  - Platelet count decreased [None]
  - Psychotic disorder [None]

NARRATIVE: CASE EVENT DATE: 20170914
